FAERS Safety Report 8821912 (Version 5)
Quarter: 2012Q4

REPORT INFORMATION
  Report Type: 
  Country: IT (occurrence: IT)
  Receive Date: 20121003
  Receipt Date: 20121108
  Transmission Date: 20130627
  Serious: Yes (Hospitalization, Other)
  Sender: FDA-Public Use
  Company Number: IT-AMGEN-ITASP2012060835

PATIENT
  Age: 58 Year
  Sex: Female

DRUGS (4)
  1. ENBREL [Suspect]
     Indication: RHEUMATOID ARTHRITIS
     Dosage: 50 mg, weekly
     Route: 058
     Dates: start: 20050714, end: 20120823
  2. DIBASE [Concomitant]
     Dosage: UNK
     Route: 048
  3. PLAQUENIL                          /00072602/ [Concomitant]
     Dosage: 200 mg, qd
     Route: 048
     Dates: start: 20040501, end: 20120926
  4. URBASON                            /00049601/ [Concomitant]
     Dosage: 2 mg, UNK
     Route: 048

REACTIONS (1)
  - Lymphoma [Not Recovered/Not Resolved]
